FAERS Safety Report 6903605-9 (Version None)
Quarter: 2010Q3

REPORT INFORMATION
  Report Type: 
  Country: None (occurrence: None)
  Receive Date: 20100803
  Receipt Date: 20081028
  Transmission Date: 20110219
  Serious: No
  Sender: FDA-Public Use
  Company Number: US-PFIZER INC-2008062418

PATIENT
  Sex: Female

DRUGS (5)
  1. LYRICA [Suspect]
     Indication: PAIN
     Dates: start: 20080625
  2. TYLENOL [Concomitant]
  3. SOMA [Concomitant]
  4. ACCURETIC [Concomitant]
  5. DIAZEPAM [Concomitant]

REACTIONS (3)
  - CHILLS [None]
  - MALAISE [None]
  - VISION BLURRED [None]
